FAERS Safety Report 6125429-5 (Version None)
Quarter: 2009Q1

REPORT INFORMATION
  Report Type: 
  Country: None (occurrence: None)
  Receive Date: 20090319
  Receipt Date: 20090319
  Transmission Date: 20090719
  Serious: Yes (Other)
  Sender: FDA-Public Use
  Company Number: None

PATIENT
  Sex: Female

DRUGS (21)
  1. REBIF [Suspect]
     Dosage: 44MCG/.5ML DISP SYRIN  44 MCG THREE TIMES A WEEK  SUBCUTANEOUS
     Route: 058
     Dates: start: 20081230, end: 20090318
  2. ADVAIR DISKUS 250/50 (FLUTICASONE PROPIONATE/SALMETEROL 250/50) [Concomitant]
  3. ALBUTEROL [Concomitant]
  4. AMBIEN [Concomitant]
  5. ASPIRIN [Concomitant]
  6. BACLOFEN [Concomitant]
  7. CELEXA [Concomitant]
  8. DOXEPIN HCL [Concomitant]
  9. ENABLEX (DARIFENACIN EXTENDED RELEASE) [Concomitant]
  10. IMITREX (SUMATRIPTAN) [Concomitant]
  11. KLONOPIN [Concomitant]
  12. LAMICTAL [Concomitant]
  13. LOPRESSOR [Concomitant]
  14. LYRICA [Concomitant]
  15. MICROGESTIN FE 1.5/30 [Concomitant]
  16. PROVIGIL [Concomitant]
  17. SINGULAIR [Concomitant]
  18. TOPAMAX [Concomitant]
  19. ULTRACET (TRAMADOL HCL + ACETAMINOPHEN) [Concomitant]
  20. WELLBUTRIN SR [Concomitant]
  21. XYZAL (LEVOCETIRIZINE) [Concomitant]

REACTIONS (1)
  - PRURITUS [None]
